FAERS Safety Report 20003692 (Version 1)
Quarter: 2021Q4

REPORT INFORMATION
  Report Type: Spontaneous
  Country: US (occurrence: US)
  Receive Date: 20211027
  Receipt Date: 20211027
  Transmission Date: 20220303
  Serious: Yes (Hospitalization, Other)
  Sender: FDA-Public Use
  Company Number: US-PROCTER_AND_GAMBLE-PH21009723

PATIENT
  Sex: Female

DRUGS (1)
  1. DIPHENHYDRAMINE HYDROCHLORIDE [Suspect]
     Active Substance: DIPHENHYDRAMINE HYDROCHLORIDE
     Dosage: 1.25 GRAM

REACTIONS (10)
  - Tachycardia [Recovered/Resolved]
  - Mydriasis [Unknown]
  - Hyperhidrosis [Unknown]
  - Overdose [Unknown]
  - Agitation [Unknown]
  - Aggression [Unknown]
  - Electrocardiogram QT prolonged [Recovered/Resolved]
  - Electrocardiogram QRS complex prolonged [Recovered/Resolved]
  - Ventricular tachycardia [Recovered/Resolved]
  - Drug screen positive [Unknown]
